FAERS Safety Report 11818630 (Version 1)
Quarter: 2015Q4

REPORT INFORMATION
  Report Type: Spontaneous
  Country: US (occurrence: None)
  Receive Date: 20151209
  Receipt Date: 20151209
  Transmission Date: 20160305
  Serious: Yes (Death)
  Sender: FDA-Public Use
  Company Number: None

PATIENT
  Age: 74 Year
  Sex: Female
  Weight: 70.08 kg

DRUGS (1)
  1. DOMPERIDONE [Suspect]
     Active Substance: DOMPERIDONE
     Indication: IMPAIRED GASTRIC EMPTYING
     Route: 048
     Dates: start: 201208, end: 201511

REACTIONS (3)
  - Respiratory failure [None]
  - Disease progression [None]
  - Pulmonary hypertension [None]

NARRATIVE: CASE EVENT DATE: 2015
